FAERS Safety Report 20969629 (Version 2)
Quarter: 2022Q3

REPORT INFORMATION
  Report Type: Spontaneous
  Country: GB (occurrence: GB)
  Receive Date: 20220616
  Receipt Date: 20220701
  Transmission Date: 20221026
  Serious: Yes (Hospitalization, Other)
  Sender: FDA-Public Use
  Company Number: GB-SCD-009230-01

PATIENT
  Age: 46 Year
  Sex: Male

DRUGS (1)
  1. SILDENAFIL CITRATE [Suspect]
     Active Substance: SILDENAFIL CITRATE
     Indication: Erectile dysfunction
     Dosage: UNK
     Route: 048

REACTIONS (5)
  - Product use issue [Unknown]
  - Penile vein thrombosis [Recovering/Resolving]
  - Penile pain [Recovering/Resolving]
  - Penile swelling [Recovering/Resolving]
  - Erection increased [Recovering/Resolving]
